FAERS Safety Report 9387012 (Version 1)
Quarter: 2013Q3

REPORT INFORMATION
  Report Type: Spontaneous
  Country: US (occurrence: US)
  Receive Date: 20130708
  Receipt Date: 20130708
  Transmission Date: 20140515
  Serious: Yes (Hospitalization)
  Sender: FDA-Public Use
  Company Number: US-MYLANLABS-2013S1014230

PATIENT
  Age: 79 Year
  Sex: Male

DRUGS (8)
  1. METHOTREXATE [Suspect]
     Indication: INCORRECT DRUG ADMINISTRATION RATE
     Dosage: ACCIDENTAL DAILY DOSING INSTEAD OF ONCE WEEKLY
     Route: 065
  2. METHOTREXATE [Suspect]
     Indication: PSORIASIS
     Dosage: ACCIDENTAL DAILY DOSING INSTEAD OF ONCE WEEKLY
     Route: 065
  3. METHOTREXATE [Suspect]
     Indication: INCORRECT DRUG ADMINISTRATION RATE
     Route: 065
  4. METHOTREXATE [Suspect]
     Indication: PSORIASIS
     Route: 065
  5. AMLODIPINE [Concomitant]
     Route: 065
  6. LISINOPRIL [Concomitant]
     Route: 065
  7. LOVASTATIN [Concomitant]
     Route: 065
  8. TRIAMCINOLONE [Concomitant]
     Dosage: 0.1% CREAM
     Route: 065

REACTIONS (6)
  - Pancytopenia [Recovering/Resolving]
  - Accidental overdose [Recovering/Resolving]
  - Inappropriate schedule of drug administration [Recovering/Resolving]
  - Toxicity to various agents [Recovering/Resolving]
  - Skin erosion [Recovering/Resolving]
  - Mucosal erosion [Unknown]
